FAERS Safety Report 6489571-1 (Version None)
Quarter: 2009Q4

REPORT INFORMATION
  Report Type: 
  Country: None (occurrence: None)
  Receive Date: 20091210
  Receipt Date: 20091120
  Transmission Date: 20100525
  Serious: Yes (Hospitalization)
  Sender: FDA-Public Use
  Company Number: FR-BAXTER-2009BH017029

PATIENT
  Age: 53 Year
  Sex: Male

DRUGS (11)
  1. ENDOXAN BAXTER [Suspect]
     Indication: ACUTE LYMPHOCYTIC LEUKAEMIA
     Route: 042
     Dates: start: 20090728, end: 20090730
  2. ENDOXAN BAXTER [Suspect]
     Route: 042
     Dates: start: 20090929, end: 20091002
  3. METHOTREXATE GENERIC [Suspect]
     Indication: ACUTE LYMPHOCYTIC LEUKAEMIA
     Route: 042
     Dates: start: 20090907, end: 20090910
  4. METHOTREXATE GENERIC [Suspect]
     Route: 042
     Dates: start: 20091026, end: 20091030
  5. METHOTREXATE GENERIC [Suspect]
     Route: 038
     Dates: start: 20090729, end: 20090729
  6. SPRYCEL [Suspect]
     Indication: ACUTE LYMPHOCYTIC LEUKAEMIA
     Route: 048
     Dates: start: 20090728, end: 20090816
  7. LENOGRASTIM [Suspect]
     Indication: ACUTE LYMPHOCYTIC LEUKAEMIA
     Route: 042
     Dates: start: 20090813, end: 20090819
  8. VINCRISTINE SULFATE [Suspect]
     Indication: ACUTE LYMPHOCYTIC LEUKAEMIA
     Route: 042
     Dates: start: 20090807, end: 20090807
  9. VINCRISTINE SULFATE [Suspect]
     Route: 042
     Dates: start: 20090929, end: 20091002
  10. ARACYTINE [Concomitant]
     Indication: ACUTE LYMPHOCYTIC LEUKAEMIA
     Route: 065
     Dates: start: 20090907, end: 20090910
  11. ARACYTINE [Concomitant]
     Route: 065
     Dates: start: 20091026, end: 20091030

REACTIONS (4)
  - INTERSTITIAL LUNG DISEASE [None]
  - OEDEMA PERIPHERAL [None]
  - PERICARDITIS [None]
  - PLEURAL EFFUSION [None]
